FAERS Safety Report 6778263 (Version 12)
Quarter: 2013Q3

REPORT INFORMATION
  Report Type: Spontaneous
  Country: US (occurrence: US)
  Receive Date: 20081003
  Receipt Date: 20130808
  Transmission Date: 20140515
  Serious: Yes (Death, Hospitalization, Other)
  Sender: FDA-Public Use
  Company Number: PHEH2008US08657

PATIENT
  Age: 50 Year
  Sex: Female

DRUGS (30)
  1. ZOMETA [Suspect]
     Dates: start: 2005
  2. FEMARA [Concomitant]
  3. TAMOXIFEN [Concomitant]
  4. ADRIAMYCIN [Concomitant]
  5. RADIATION [Concomitant]
  6. XELODA [Concomitant]
  7. AROMASIN [Concomitant]
  8. VICODIN [Concomitant]
  9. OXYCONTIN [Concomitant]
  10. PRILOSEC [Concomitant]
  11. REGLAN                                  /USA/ [Concomitant]
  12. AMOXIL ^AYERST LAB^ [Concomitant]
  13. FENTANYL [Concomitant]
  14. NEXIUM [Concomitant]
  15. PROPRANOLOL [Concomitant]
  16. VANCOMYCIN [Concomitant]
  17. LEVOFLOXACIN [Concomitant]
  18. HYDROCODONE [Concomitant]
  19. OXYCODONE [Concomitant]
  20. PROMETHAZINE [Concomitant]
  21. HYDROMORPHONE [Concomitant]
  22. DEXAMETHASONE [Concomitant]
  23. LEVAQUIN [Concomitant]
  24. FLAGYL [Concomitant]
  25. ALDACTONE [Concomitant]
  26. FASLODEX [Concomitant]
  27. PRIMAXIN [Concomitant]
  28. CLEOCIN [Concomitant]
     Dosage: 150 MG, UNK
  29. MOTRIN [Concomitant]
     Dosage: 600 MG, UNK
  30. MORPHINE [Concomitant]

REACTIONS (27)
  - Death [Fatal]
  - Haemoptysis [Unknown]
  - Cellulitis streptococcal [Unknown]
  - Respiratory tract infection [Unknown]
  - Osteonecrosis of jaw [Unknown]
  - Varices oesophageal [Unknown]
  - Pain [Unknown]
  - Discomfort [Unknown]
  - Scar [Unknown]
  - Eating disorder [Unknown]
  - Emotional distress [Unknown]
  - Anxiety [Unknown]
  - Anhedonia [Unknown]
  - Injury [Unknown]
  - Periodontitis [Unknown]
  - Bone disorder [Unknown]
  - Tooth fracture [Unknown]
  - Toothache [Unknown]
  - Malignant neoplasm progression [Unknown]
  - Hepatic cirrhosis [Unknown]
  - Vomiting [Unknown]
  - Influenza [Unknown]
  - Anaemia [Unknown]
  - Sinusitis [Unknown]
  - Gastrooesophageal reflux disease [Unknown]
  - Aphasia [Unknown]
  - Bone pain [Unknown]
